FAERS Safety Report 7866451-8 (Version None)
Quarter: 2011Q4

REPORT INFORMATION
  Report Type: 
  Country: None (occurrence: None)
  Receive Date: 20111028
  Receipt Date: 20110620
  Transmission Date: 20120403
  Serious: No
  Sender: FDA-Public Use
  Company Number: US-GLAXOSMITHKLINE-A0932031A

PATIENT
  Age: 54 Year
  Sex: Male

DRUGS (7)
  1. ADVAIR DISKUS 100/50 [Suspect]
     Indication: RESTRICTIVE PULMONARY DISEASE
     Dosage: 1PUFF TWICE PER DAY
     Route: 055
     Dates: start: 20110401
  2. VITAMIN TAB [Concomitant]
  3. REQUIP XL [Concomitant]
  4. LEVOTHYROXINE SODIUM [Concomitant]
  5. SINGULAIR [Concomitant]
  6. METOPROLOL TARTRATE [Concomitant]
  7. FISH OIL [Concomitant]

REACTIONS (4)
  - MYALGIA [None]
  - MUSCULOSKELETAL PAIN [None]
  - PAIN IN EXTREMITY [None]
  - BACK PAIN [None]
